FAERS Safety Report 9820151 (Version 1)
Quarter: 2013Q4

REPORT INFORMATION
  Report Type: Spontaneous
  Country: US (occurrence: None)
  Receive Date: 20131021
  Receipt Date: 20131021
  Transmission Date: 20140711
  Serious: Yes (Other)
  Sender: FDA-Public Use
  Company Number: 2012SCPR004799

PATIENT
  Age: 88 Year
  Sex: Female

DRUGS (12)
  1. FENTANYL TRANSDERMAL SYSTEM [Suspect]
     Indication: PAIN
     Dosage: 1 DF, EVERY 72 HOURS, TRANSDERMAL
  2. ASPIRIN (ACETYLSALICYLIC ACID) [Concomitant]
  3. HYDREA (HYDROXYCARBAMIDE) [Concomitant]
  4. VITAMIN B12 /00056201/ (CYANOCOBALAMIN) [Concomitant]
  5. PLAVIX (CLOPIDOGREL BISULFATE) [Concomitant]
  6. CLONIDINE (CLONIDINE) [Concomitant]
  7. PREDNISONE (PREDNISONE) [Concomitant]
  8. XANAX (ALPRAZOLAM) [Concomitant]
  9. METOPROLOL SUCCINATE (METOPROLOL SUCCINATE) [Concomitant]
  10. ZOCOR (SIMVASTATIN) [Concomitant]
  11. MIRAPEX (PRAMIPEXOLE DIHYDROCHLORIDE) [Concomitant]
  12. PAXIL (PAROXETINE HYDROCHLORIDE) [Concomitant]

REACTIONS (4)
  - Dyspnoea [None]
  - Insomnia [None]
  - Confusional state [None]
  - Nausea [None]
